FAERS Safety Report 13754122 (Version 1)
Quarter: 2017Q3

REPORT INFORMATION
  Report Type: Spontaneous
  Country: DE (occurrence: DE)
  Receive Date: 20170713
  Receipt Date: 20170713
  Transmission Date: 20171127
  Serious: Yes (Other)
  Sender: FDA-Public Use
  Company Number: DE-009507513-1707DEU001469

PATIENT
  Age: 63 Year
  Sex: Male

DRUGS (1)
  1. DIPROGENTA [Suspect]
     Active Substance: BETAMETHASONE DIPROPIONATE\GENTAMICIN SULFATE
     Indication: ECZEMA
     Dosage: ONE TIME IN THE MORNING AND ONE TIME IN THE EVENING
     Dates: start: 20170707, end: 20170707

REACTIONS (1)
  - Visual impairment [Unknown]

NARRATIVE: CASE EVENT DATE: 20170707
